FAERS Safety Report 5801126-8 (Version None)
Quarter: 2008Q3

REPORT INFORMATION
  Report Type: 
  Country: None (occurrence: None)
  Receive Date: 20080707
  Receipt Date: 20080623
  Transmission Date: 20090109
  Serious: Yes (Hospitalization)
  Sender: FDA-Public Use
  Company Number: PHHY2008JP08517

PATIENT
  Sex: Male
  Weight: 65 kg

DRUGS (11)
  1. DIOVAN [Suspect]
     Indication: HYPERTENSION
     Dosage: 80 MG, UNK
     Route: 048
     Dates: start: 20080404, end: 20080425
  2. BERIZYM [Concomitant]
     Indication: GASTRITIS
     Dosage: 3 DF, UNK
     Route: 048
  3. ARICEPT [Concomitant]
     Dosage: 5MG
     Route: 048
  4. ADOFEED [Concomitant]
     Indication: ARTHRALGIA
     Dosage: 1 DF, UNK
     Route: 061
  5. ZYLORIC [Concomitant]
     Indication: GOUT
     Dosage: 1DF
     Route: 048
  6. LENDORMIN [Concomitant]
     Indication: INSOMNIA
     Dosage: 1 DF
     Route: 048
  7. VOLTAREN EMULGEL ^GEIGY^ [Concomitant]
     Indication: ARTHRALGIA
     Route: 061
  8. TENORMIN [Concomitant]
     Indication: HYPERTROPHIC CARDIOMYOPATHY
     Dosage: 25 MG, UNK
     Route: 048
     Dates: start: 20010101
  9. TENORMIN [Concomitant]
     Indication: HYPERTENSION
  10. COIX SEED [Concomitant]
     Dosage: UNK
     Route: 048
     Dates: start: 20080401
  11. HACHIMI-JIO-GAN [Concomitant]
     Dosage: UNK
     Route: 048
     Dates: start: 20080401

REACTIONS (9)
  - CARDIAC FAILURE [None]
  - CARDIOMEGALY [None]
  - CATARACT OPERATION [None]
  - DYSPNOEA EXERTIONAL [None]
  - GENERALISED OEDEMA [None]
  - IDIOPATHIC THROMBOCYTOPENIC PURPURA [None]
  - NEUTROPENIA [None]
  - PLATELET COUNT DECREASED [None]
  - WHITE BLOOD CELL COUNT DECREASED [None]
